FAERS Safety Report 24825657 (Version 1)
Quarter: 2025Q1

REPORT INFORMATION
  Report Type: Spontaneous
  Country: US (occurrence: US)
  Receive Date: 20250109
  Receipt Date: 20250109
  Transmission Date: 20250409
  Serious: No
  Sender: PFIZER
  Company Number: US-PFIZER INC-202500002391

PATIENT
  Age: 85 Year
  Sex: Male
  Weight: 99.79 kg

DRUGS (7)
  1. PAXLOVID [Suspect]
     Active Substance: NIRMATRELVIR\RITONAVIR
     Indication: COVID-19 treatment
     Dosage: [NIRMATRELVIR 150 MG]/[RITONAVIR 100 MG]; 2X/DAY
     Dates: start: 20250102
  2. ALLOPURINOL [Concomitant]
     Active Substance: ALLOPURINOL
     Dosage: 300 MG, 1X/DAY
  3. ASPIRIN [Concomitant]
     Active Substance: ASPIRIN
     Dosage: UNK, 1X/DAY 81
  4. BENZONATATE [Concomitant]
     Active Substance: BENZONATATE
     Indication: Cough
  5. LOSARTAN [Concomitant]
     Active Substance: LOSARTAN
     Dosage: UNK, 1X/DAY 100
  6. HYDROCHLOROTHIAZIDE [Concomitant]
     Active Substance: HYDROCHLOROTHIAZIDE
     Dosage: 125 MG, 1X/DAY
  7. ROSUVASTATIN [Concomitant]
     Active Substance: ROSUVASTATIN
     Indication: Blood cholesterol

REACTIONS (2)
  - Poor quality product administered [Unknown]
  - Product packaging quantity issue [Unknown]
